FAERS Safety Report 18178724 (Version 2)
Quarter: 2020Q3

REPORT INFORMATION
  Report Type: Spontaneous
  Country: DE (occurrence: DE)
  Receive Date: 20200820
  Receipt Date: 20200821
  Transmission Date: 20201103
  Serious: Yes (Hospitalization)
  Sender: FDA-Public Use
  Company Number: DE-PFIZER INC-2020321296

PATIENT
  Age: 92 Year
  Sex: Female
  Weight: 59 kg

DRUGS (15)
  1. NALOXONE/TILIDINE [Concomitant]
     Active Substance: NALOXONE HYDROCHLORIDE\TILIDINE HYDROCHLORIDE
     Dosage: UNK, 2X/DAY
     Route: 048
  2. PIROXICAM. [Interacting]
     Active Substance: PIROXICAM
     Dosage: 10 MG, 2X/DAY
     Route: 048
  3. AMITRIPTYLIN [Concomitant]
     Active Substance: AMITRIPTYLINE
     Dosage: 10 MG, 1X/DAY
     Route: 048
  4. METOCLOPRAMID [METOCLOPRAMIDE] [Concomitant]
     Active Substance: METOCLOPRAMIDE
     Dosage: 10 MG, 2X/DAY
     Route: 048
  5. ENOXAPARIN [Concomitant]
     Active Substance: ENOXAPARIN
     Dosage: 60 MG, 1X/DAY
     Route: 058
  6. VITAMIN D [COLECALCIFEROL] [Concomitant]
     Active Substance: CHOLECALCIFEROL
     Dosage: 20000 IU, WEEKLY
     Route: 048
  7. PREDNISOLONE. [Interacting]
     Active Substance: PREDNISOLONE
     Dosage: 20 MG, DAILY
     Route: 048
  8. BUPRENORPHINE. [Concomitant]
     Active Substance: BUPRENORPHINE
     Dosage: 20 MG, WEEKLY
     Route: 062
  9. TORASEMIDE [Interacting]
     Active Substance: TORSEMIDE
     Dosage: 20 MG, 2X/DAY (1?0.5?0?0)
     Route: 048
  10. PANTOPRAZOL [PANTOPRAZOLE] [Concomitant]
     Active Substance: PANTOPRAZOLE
     Dosage: 40 MG, 1X/DAY
     Route: 048
  11. RAMIPRIL. [Suspect]
     Active Substance: RAMIPRIL
     Dosage: 5 MG, 2X/DAY (BID)
     Route: 048
  12. AMLODIPINE BESILATE [Interacting]
     Active Substance: AMLODIPINE BESYLATE
     Dosage: 10 MG, 2X/DAY ( BID, 0.5?0?0.5?0)
     Route: 048
  13. METAMIZOLE [Interacting]
     Active Substance: METAMIZOLE
     Dosage: 500 MG, 4X/DAY (1?1?1?1)
     Route: 048
  14. MACROGOL [Concomitant]
     Active Substance: POLYETHYLENE GLYCOLS
     Dosage: 13.8 G, 2X/DAY (BID)
     Route: 048
  15. CEFUROXIM [CEFUROXIME] [Concomitant]
     Active Substance: CEFUROXIME
     Dosage: 500 MG, 2X/DAY
     Route: 048

REACTIONS (8)
  - Product monitoring error [Unknown]
  - Product prescribing error [Unknown]
  - Labelled drug-drug interaction medication error [Unknown]
  - Localised infection [Unknown]
  - Erythema [Unknown]
  - Peripheral swelling [Unknown]
  - Wound [Unknown]
  - Arthralgia [Unknown]
